FAERS Safety Report 17692805 (Version 1)
Quarter: 2020Q2

REPORT INFORMATION
  Report Type: Spontaneous
  Country: JP (occurrence: JP)
  Receive Date: 20200422
  Receipt Date: 20200422
  Transmission Date: 20200714
  Serious: Yes (Other)
  Sender: FDA-Public Use
  Company Number: JP-SUN PHARMACEUTICAL INDUSTRIES LTD-2020RR-244716

PATIENT
  Age: 64 Year
  Sex: Male

DRUGS (13)
  1. DEXAMETHASONE. [Suspect]
     Active Substance: DEXAMETHASONE
     Indication: PLASMABLASTIC LYMPHOMA
     Dosage: 40 MILLIGRAM (DAYS 1, 8, 15, 22)
     Route: 048
  2. ETOPOSIDE. [Suspect]
     Active Substance: ETOPOSIDE
     Indication: PLASMABLASTIC LYMPHOMA
     Dosage: 50 MILLIGRAM/SQ. METER (ON DAY 1-4)
     Route: 065
  3. PREDNISOLONE. [Suspect]
     Active Substance: PREDNISOLONE
     Indication: PLASMABLASTIC LYMPHOMA
     Dosage: 40 MILLIGRAM/SQ. METER (DAY 1-4)
     Route: 065
  4. VINCRISTINE [Suspect]
     Active Substance: VINCRISTINE
     Indication: PLASMABLASTIC LYMPHOMA
     Dosage: 0.4 MILLIGRAM/SQ. METER (DA 1-4)
     Route: 065
  5. IFOSFAMIDE. [Suspect]
     Active Substance: IFOSFAMIDE
     Indication: PLASMABLASTIC LYMPHOMA
     Dosage: 5 MILLIGRAM/SQ. METER (DAYS 2-3)
     Route: 065
  6. LENALIDOMIDE [Suspect]
     Active Substance: LENALIDOMIDE
     Indication: PLASMABLASTIC LYMPHOMA
     Dosage: 25 MILLIGRAM (DAYS 1 AND 22)
     Route: 065
  7. DOXORUBICIN [Suspect]
     Active Substance: DOXORUBICIN
     Indication: PLASMABLASTIC LYMPHOMA
     Dosage: 10 MILLIGRAM/SQ. METER (DAY 1-4)
     Route: 065
  8. CYCLOPHOSPHAMIDE. [Suspect]
     Active Substance: CYCLOPHOSPHAMIDE
     Dosage: 300 MILLIGRAM (DAY 1, 8, 15, 22)
     Route: 048
  9. DEXAMETHASONE. [Suspect]
     Active Substance: DEXAMETHASONE
     Dosage: 20 MILLIGRAM (DAYS 1, 8, 15, 22)
     Route: 065
  10. ETOPOSIDE. [Suspect]
     Active Substance: ETOPOSIDE
     Dosage: 100 MILLIGRAM/SQ. METER (DAY 1-2)
     Route: 065
  11. CARBOPLATIN. [Suspect]
     Active Substance: CARBOPLATIN
     Indication: PLASMABLASTIC LYMPHOMA
     Dosage: 5 MILLIGRAM (DAY 1)
     Route: 065
  12. BORTEZOMIB. [Suspect]
     Active Substance: BORTEZOMIB
     Indication: PLASMABLASTIC LYMPHOMA
     Dosage: 1.3 MILLIGRAM/SQ. METER (DAYS 1,8,15, 22)
     Route: 058
  13. CYCLOPHOSPHAMIDE. [Suspect]
     Active Substance: CYCLOPHOSPHAMIDE
     Indication: PLASMABLASTIC LYMPHOMA
     Dosage: 750 MILLIGRAM/SQ. METER (ON DAY 5)
     Route: 065

REACTIONS (4)
  - Neuropathy peripheral [Unknown]
  - Drug ineffective [Unknown]
  - Therapy partial responder [Unknown]
  - Drug intolerance [Unknown]
